FAERS Safety Report 17433680 (Version 2)
Quarter: 2022Q4

REPORT INFORMATION
  Report Type: Spontaneous
  Country: PT (occurrence: PT)
  Receive Date: 20200219
  Receipt Date: 20221124
  Transmission Date: 20230113
  Serious: Yes (Life-Threatening, Hospitalization, Other)
  Sender: FDA-Public Use
  Company Number: PT-CONCORDIA PHARMACEUTICALS INC.-GSH201709-005533

PATIENT

DRUGS (44)
  1. PREDNISOLONE [Suspect]
     Active Substance: PREDNISOLONE
     Dosage: UNK
  2. FLURBIPROFEN [Suspect]
     Active Substance: FLURBIPROFEN
     Indication: Urticaria chronic
     Dosage: UNK
  3. FLURBIPROFEN [Suspect]
     Active Substance: FLURBIPROFEN
     Indication: Asthma
  4. DESLORATADINE [Suspect]
     Active Substance: DESLORATADINE
     Indication: Asthma
     Dosage: UNK
     Route: 048
  5. DESLORATADINE [Suspect]
     Active Substance: DESLORATADINE
     Indication: Urticaria chronic
     Dosage: UNK
     Route: 065
  6. DESLORATADINE [Suspect]
     Active Substance: DESLORATADINE
     Indication: Drug provocation test
     Dosage: UNK, DPT
     Route: 048
  7. LORATADINE [Suspect]
     Active Substance: LORATADINE
     Indication: Asthma
     Dosage: UNK
     Route: 065
  8. LORATADINE [Suspect]
     Active Substance: LORATADINE
     Indication: Urticaria chronic
  9. ZYRTEC [Suspect]
     Active Substance: CETIRIZINE HYDROCHLORIDE
     Indication: Asthma
     Dosage: UNK
     Route: 048
  10. ZYRTEC [Suspect]
     Active Substance: CETIRIZINE HYDROCHLORIDE
     Indication: Urticaria chronic
     Dosage: UNK
     Route: 065
  11. ZYRTEC [Suspect]
     Active Substance: CETIRIZINE HYDROCHLORIDE
     Dosage: 150 MG
     Route: 065
  12. HYDROCORTISONE [Suspect]
     Active Substance: HYDROCORTISONE
     Indication: Asthma
     Dosage: UNK
     Route: 062
  13. HYDROCORTISONE [Suspect]
     Active Substance: HYDROCORTISONE
     Indication: Urticaria chronic
  14. METHYLPREDNISOLONE [Suspect]
     Active Substance: METHYLPREDNISOLONE
     Indication: Asthma
     Dosage: UNK
     Route: 062
  15. METHYLPREDNISOLONE [Suspect]
     Active Substance: METHYLPREDNISOLONE
     Indication: Urticaria chronic
  16. DEFLAZACORT [Suspect]
     Active Substance: DEFLAZACORT
     Indication: Asthma
     Dosage: UNK
     Route: 062
  17. DEFLAZACORT [Suspect]
     Active Substance: DEFLAZACORT
     Indication: Urticaria chronic
     Dosage: UNK
     Route: 065
  18. ACETAMINOPHEN [Suspect]
     Active Substance: ACETAMINOPHEN
     Indication: Asthma
     Dosage: UNK
     Route: 065
  19. ACETAMINOPHEN [Suspect]
     Active Substance: ACETAMINOPHEN
     Indication: Urticaria chronic
  20. IBUPROFEN [Suspect]
     Active Substance: IBUPROFEN
     Indication: Asthma
     Dosage: UNK
     Route: 065
  21. IBUPROFEN [Suspect]
     Active Substance: IBUPROFEN
     Indication: Urticaria chronic
  22. HYDROXYZINE [Suspect]
     Active Substance: HYDROXYZINE HYDROCHLORIDE
     Indication: Asthma
     Dosage: UNK
     Route: 065
  23. HYDROXYZINE [Suspect]
     Active Substance: HYDROXYZINE HYDROCHLORIDE
     Indication: Urticaria chronic
  24. DIMETHINDENE [Suspect]
     Active Substance: DIMETHINDENE
     Dosage: UNK
  25. DEXAMETHASONE [Suspect]
     Active Substance: DEXAMETHASONE
     Indication: Asthma
     Dosage: UNK
     Route: 065
  26. DEXAMETHASONE [Suspect]
     Active Substance: DEXAMETHASONE
     Indication: Urticaria
  27. EBASTINE [Suspect]
     Active Substance: EBASTINE
     Indication: Asthma
     Dosage: UNK
     Route: 065
  28. EBASTINE [Suspect]
     Active Substance: EBASTINE
     Indication: Urticaria chronic
  29. CLEMASTINE [Suspect]
     Active Substance: CLEMASTINE
     Indication: Asthma
     Dosage: UNK
     Route: 065
  30. CLEMASTINE [Suspect]
     Active Substance: CLEMASTINE
     Indication: Urticaria chronic
  31. MONTELUKAST [Suspect]
     Active Substance: MONTELUKAST SODIUM
     Indication: Asthma
     Dosage: UNK, DPT
     Route: 048
  32. MONTELUKAST [Suspect]
     Active Substance: MONTELUKAST SODIUM
     Indication: Urticaria chronic
     Dosage: UNK
     Route: 065
  33. MONTELUKAST [Suspect]
     Active Substance: MONTELUKAST SODIUM
     Indication: Drug provocation test
  34. NIMESULIDE [Suspect]
     Active Substance: NIMESULIDE
     Dosage: UNK
  35. LORATADINE [Suspect]
     Active Substance: LORATADINE
     Indication: Asthma
     Dosage: 150 MG
     Route: 048
  36. LORATADINE [Suspect]
     Active Substance: LORATADINE
     Indication: Urticaria chronic
     Dosage: UNK
  37. OMALIZUMAB [Suspect]
     Active Substance: OMALIZUMAB
     Indication: Asthma
     Dosage: 300 MG
     Route: 065
  38. OMALIZUMAB [Suspect]
     Active Substance: OMALIZUMAB
     Indication: Angioedema
     Dosage: 150 MG
     Route: 065
  39. OMALIZUMAB [Suspect]
     Active Substance: OMALIZUMAB
     Indication: Urticaria chronic
     Dosage: UNK
     Route: 065
  40. ACETAMINOPHEN [Suspect]
     Active Substance: ACETAMINOPHEN
     Indication: Asthma
     Dosage: UNK
  41. CETIRIZINE HYDROCHLORIDE [Suspect]
     Active Substance: CETIRIZINE HYDROCHLORIDE
     Indication: Urticaria chronic
     Dosage: UNK
  42. HYDROCORTISONE [Suspect]
     Active Substance: HYDROCORTISONE
     Indication: Asthma
     Dosage: UNK
     Route: 048
  43. DEFLAZACORT [Suspect]
     Active Substance: DEFLAZACORT
     Indication: Asthma
     Route: 048
  44. DEFLAZACORT [Suspect]
     Active Substance: DEFLAZACORT
     Indication: Urticaria chronic

REACTIONS (9)
  - Drug reaction with eosinophilia and systemic symptoms [Unknown]
  - Syncope [Unknown]
  - Allergy test positive [Recovering/Resolving]
  - Angioedema [Unknown]
  - Drug hypersensitivity [Recovered/Resolved]
  - Urticaria [Recovering/Resolving]
  - Exposure during pregnancy [Unknown]
  - Maternal exposure during pregnancy [Unknown]
  - Product use in unapproved indication [Unknown]
